FAERS Safety Report 17229892 (Version 1)
Quarter: 2020Q1

REPORT INFORMATION
  Report Type: Spontaneous
  Country: RU (occurrence: RU)
  Receive Date: 20200103
  Receipt Date: 20200103
  Transmission Date: 20200409
  Serious: Yes (Other)
  Sender: FDA-Public Use
  Company Number: NVSC2019RU084386

PATIENT
  Age: 70 Year
  Sex: Female

DRUGS (4)
  1. LEVOFLOXACIN. [Suspect]
     Active Substance: LEVOFLOXACIN
     Indication: ENCEPHALITIS
  2. VANCOMYCIN [Concomitant]
     Active Substance: VANCOMYCIN
     Indication: ENCEPHALITIS
  3. LEVOFLOXACIN. [Suspect]
     Active Substance: LEVOFLOXACIN
     Indication: LISTERIOSIS
     Dosage: 1000 MG
     Route: 042
     Dates: start: 20180327, end: 20180402
  4. VANCOMYCIN [Concomitant]
     Active Substance: VANCOMYCIN
     Indication: LISTERIOSIS
     Dosage: 2 G, QD
     Route: 042
     Dates: start: 20180327, end: 20180402

REACTIONS (2)
  - Encephalitis [Unknown]
  - Product use in unapproved indication [Unknown]

NARRATIVE: CASE EVENT DATE: 20180402
